FAERS Safety Report 4315574-9 (Version None)
Quarter: 2004Q1

REPORT INFORMATION
  Report Type: 
  Country: None (occurrence: None)
  Receive Date: 20040310
  Receipt Date: 20040225
  Transmission Date: 20041129
  Serious: Yes (Death, Hospitalization)
  Sender: FDA-Public Use
  Company Number: US-JNJFOC-20031104346

PATIENT
  Age: 63 Year
  Sex: Female

DRUGS (4)
  1. DURAGESIC [Suspect]
     Indication: CANCER PAIN
     Dosage: 100 UG/HR, 1 IN 72 HOUR, TRANSDERMAL; 200 UG/HR, 1 IN 72 HOUR, TRANSDERMAL
     Route: 062
     Dates: start: 20030101, end: 20031101
  2. DURAGESIC [Suspect]
     Indication: CANCER PAIN
     Dosage: 100 UG/HR, 1 IN 72 HOUR, TRANSDERMAL; 200 UG/HR, 1 IN 72 HOUR, TRANSDERMAL
     Route: 062
     Dates: start: 20031101, end: 20031120
  3. HALDOL [Suspect]
     Indication: DRUG USE FOR UNKNOWN INDICATION
     Dosage: 20 MG, 1 IN 4 HOUR PRN, ORAL
     Route: 048
  4. DECADRON [Concomitant]

REACTIONS (2)
  - DRUG HYPERSENSITIVITY [None]
  - LETHARGY [None]
